FAERS Safety Report 22155974 (Version 1)
Quarter: 2023Q1

REPORT INFORMATION
  Report Type: Spontaneous
  Country: US (occurrence: None)
  Receive Date: 20230329
  Receipt Date: 20230329
  Transmission Date: 20230418
  Serious: Yes (Hospitalization)
  Sender: FDA-Public Use
  Company Number: None

PATIENT
  Sex: Female

DRUGS (1)
  1. FINGOLIMOD [Suspect]
     Active Substance: FINGOLIMOD
     Indication: Multiple sclerosis
     Dosage: FREQUENCY : DAILY;?
     Route: 048
     Dates: start: 202303

REACTIONS (9)
  - Headache [None]
  - Arthralgia [None]
  - Cardiac flutter [None]
  - Paraesthesia [None]
  - Hypoaesthesia [None]
  - Feeling abnormal [None]
  - Stress [None]
  - Emotional disorder [None]
  - Multiple sclerosis [None]
